FAERS Safety Report 20572016 (Version 9)
Quarter: 2023Q2

REPORT INFORMATION
  Report Type: Spontaneous
  Country: US (occurrence: US)
  Receive Date: 20220309
  Receipt Date: 20230630
  Transmission Date: 20230721
  Serious: Yes (Hospitalization, Disabling, Other)
  Sender: FDA-Public Use
  Company Number: US-ORGANON-O2203USA000737

PATIENT
  Sex: Female

DRUGS (5)
  1. SINGULAIR [Suspect]
     Active Substance: MONTELUKAST SODIUM
     Dosage: UNK
     Route: 048
     Dates: start: 1998
  2. SINGULAIR [Suspect]
     Active Substance: MONTELUKAST SODIUM
     Indication: Asthma
     Dosage: 10 MILLIGRAM, DAILY
     Route: 048
  3. SINGULAIR [Suspect]
     Active Substance: MONTELUKAST SODIUM
     Dosage: 1 TABLET, HS
     Route: 048
     Dates: end: 2013
  4. SINGULAIR [Suspect]
     Active Substance: MONTELUKAST SODIUM
     Dosage: TAKE 1 TABLET BY MOUTH EVERY DAYUNK
     Route: 048
  5. ADVAIR HFA [Suspect]
     Active Substance: FLUTICASONE PROPIONATE\SALMETEROL XINAFOATE
     Indication: Asthma
     Dosage: UNK

REACTIONS (18)
  - Neuropsychiatric symptoms [Not Recovered/Not Resolved]
  - Panic attack [Unknown]
  - Major depression [Recovered/Resolved]
  - Migraine [Recovered/Resolved]
  - Intentional self-injury [Unknown]
  - Generalised anxiety disorder [Not Recovered/Not Resolved]
  - Suicidal behaviour [Unknown]
  - Suicidal ideation [Recovered/Resolved]
  - Suicidal ideation [Unknown]
  - Mental disorder [Not Recovered/Not Resolved]
  - Social anxiety disorder [Not Recovered/Not Resolved]
  - Social avoidant behaviour [Unknown]
  - Feeling abnormal [Unknown]
  - Neuralgia [Unknown]
  - Migraine [Unknown]
  - Anxiety [Recovering/Resolving]
  - Asthenia [Not Recovered/Not Resolved]
  - Abdominal pain [Not Recovered/Not Resolved]

NARRATIVE: CASE EVENT DATE: 20070101
